FAERS Safety Report 9549698 (Version 2)
Quarter: 2013Q4

REPORT INFORMATION
  Report Type: Report from Study
  Country: US (occurrence: US)
  Receive Date: 20130924
  Receipt Date: 20131023
  Transmission Date: 20140711
  Serious: Yes (Hospitalization)
  Sender: FDA-Public Use
  Company Number: US-BRISTOL-MYERS SQUIBB COMPANY-19396373

PATIENT
  Age: 65 Year
  Sex: Male
  Weight: 93.87 kg

DRUGS (17)
  1. BLINDED: BYDUREON [Suspect]
     Indication: TYPE 2 DIABETES MELLITUS
     Dosage: INTRPD:28AUG2013
     Dates: start: 20130423
  2. BLINDED: PLACEBO [Suspect]
     Indication: TYPE 2 DIABETES MELLITUS
     Dosage: INTRPD:28AUG2013
     Dates: start: 20130423
  3. METFORMIN HCL TABS [Concomitant]
     Indication: TYPE 2 DIABETES MELLITUS
     Route: 048
     Dates: start: 20130226
  4. ASPIRIN [Concomitant]
     Indication: CARDIAC DISORDER
     Dates: start: 20130310
  5. ATENOLOL [Concomitant]
     Indication: BLOOD PRESSURE
     Dates: start: 20130310
  6. CHOLECALCIFEROL [Concomitant]
     Indication: VITAMIN SUPPLEMENTATION
     Dosage: 1DF:8000 UNITS
     Dates: start: 20130308
  7. CLONAZEPAM [Concomitant]
     Indication: ANXIETY
     Dates: start: 20130809
  8. FERROUS SULFATE [Concomitant]
     Indication: MINERAL SUPPLEMENTATION
     Dates: start: 20130308
  9. FUROSEMIDE [Concomitant]
     Indication: FLUID RETENTION
     Dates: start: 20130426
  10. GLIPIZIDE [Concomitant]
     Indication: DIABETES MELLITUS
     Dates: start: 20130312
  11. LISINOPRIL [Concomitant]
     Indication: BLOOD PRESSURE
     Dates: start: 20130310
  12. PANTOPRAZOLE [Concomitant]
     Indication: GASTROOESOPHAGEAL REFLUX DISEASE
     Dates: start: 20130904
  13. PRAVASTATIN SODIUM [Concomitant]
     Indication: LOW DENSITY LIPOPROTEIN INCREASED
     Dates: start: 20130310
  14. QUETIAPINE [Concomitant]
     Indication: MAJOR DEPRESSION
     Dates: start: 20130517
  15. SUCRALFATE [Concomitant]
     Indication: GASTROOESOPHAGEAL REFLUX DISEASE
     Dates: start: 20130904
  16. TAMSULOSIN [Concomitant]
     Indication: PROSTATIC DISORDER
     Dates: start: 20130904
  17. SILDENAFIL [Concomitant]
     Indication: ERECTILE DYSFUNCTION
     Dates: start: 20130308

REACTIONS (1)
  - Pancreatitis [Recovered/Resolved]
